FAERS Safety Report 17740264 (Version 2)
Quarter: 2020Q2

REPORT INFORMATION
  Report Type: Spontaneous
  Country: US (occurrence: US)
  Receive Date: 20200504
  Receipt Date: 20200511
  Transmission Date: 20200714
  Serious: No
  Sender: FDA-Public Use
  Company Number: US-PFIZER INC-2019431007

PATIENT
  Age: 72 Year
  Sex: Female

DRUGS (2)
  1. IBRANCE [Suspect]
     Active Substance: PALBOCICLIB
     Indication: BREAST CANCER FEMALE
     Dosage: 100 MG, UNK (TWO WEEKS)
  2. IBRANCE [Suspect]
     Active Substance: PALBOCICLIB
     Indication: NON-HODGKIN^S LYMPHOMA
     Dosage: 100 MG, UNK (THREE WEEKS)

REACTIONS (1)
  - Viral infection [Unknown]
